FAERS Safety Report 17351059 (Version 3)
Quarter: 2022Q3

REPORT INFORMATION
  Report Type: Other
  Country: US (occurrence: US)
  Receive Date: 20200130
  Receipt Date: 20220707
  Transmission Date: 20221027
  Serious: Yes (Hospitalization, Other)
  Sender: FDA-Public Use
  Company Number: FDA-CDER-CTU-2019-77227

PATIENT
  Age: 55 Year
  Sex: Female
  Weight: 101.59 kg

DRUGS (34)
  1. FIRDAPSE [Suspect]
     Active Substance: AMIFAMPRIDINE PHOSPHATE
     Indication: Myasthenic syndrome
     Dosage: UNK, 4X/DAY (EVERY 6 HOURS)
     Route: 048
     Dates: start: 20190401
  2. FIRDAPSE [Suspect]
     Active Substance: AMIFAMPRIDINE PHOSPHATE
     Dosage: 20 MG, 4X/DAY
     Route: 048
     Dates: start: 20220317
  3. PREDNISONE [Concomitant]
     Active Substance: PREDNISONE
     Dosage: 6 MG, 1X/DAY
  4. ARTHROTEC [Concomitant]
     Active Substance: DICLOFENAC SODIUM\MISOPROSTOL
     Dosage: 1 DOSAGE UNITS, 2X/DAY
  5. MODAFINIL [Concomitant]
     Active Substance: MODAFINIL
  6. LISINOPRIL [Concomitant]
     Active Substance: LISINOPRIL
     Dosage: 20 MG, 1X/DAY
  7. TRULICITY [Concomitant]
     Active Substance: DULAGLUTIDE
  8. CYMBALTA [Concomitant]
     Active Substance: DULOXETINE HYDROCHLORIDE
     Dosage: 60 MG, 1X/DAY
  9. PANTOPRAZOLE [Concomitant]
     Active Substance: PANTOPRAZOLE
     Dosage: 40 MG, 1X/DAY
  10. TIROSINT [Concomitant]
     Active Substance: LEVOTHYROXINE SODIUM
  11. BUDESONIDE [Concomitant]
     Active Substance: BUDESONIDE
  12. NALTREXONE [Concomitant]
     Active Substance: NALTREXONE
  13. PROBIOTICS NOS [Concomitant]
     Active Substance: PROBIOTICS NOS
  14. TART CHERRY [Concomitant]
  15. HERBALS\TURMERIC [Concomitant]
     Active Substance: HERBALS\TURMERIC
  16. CALCIUM [Concomitant]
     Active Substance: CALCIUM
  17. VITAMIN B12 [Concomitant]
     Active Substance: CYANOCOBALAMIN
  18. LORAZEPAM [Concomitant]
     Active Substance: LORAZEPAM
     Dosage: 1 MG, AS NEEDED
  19. PYRIDOSTIGMINE [Concomitant]
     Active Substance: PYRIDOSTIGMINE
  20. CELLCEPT [Concomitant]
     Active Substance: MYCOPHENOLATE MOFETIL
     Dosage: 500 MG, 2X/DAY
  21. HYDROXYCHLOROQUINE [Concomitant]
     Active Substance: HYDROXYCHLOROQUINE
  22. VIMPAT [Concomitant]
     Active Substance: LACOSAMIDE
     Dosage: 200 MG, 2X/DAY
  23. TOPIRAMATE [Concomitant]
     Active Substance: TOPIRAMATE
  24. MELATONIN [Concomitant]
     Active Substance: MELATONIN
  25. OS-CAL CALCIUM PLUS D3 [Concomitant]
  26. VITAMIN B COMPLEX [Concomitant]
     Active Substance: CYANOCOBALAMIN\DEXPANTHENOL\NIACINAMIDE\PYRIDOXINE HYDROCHLORIDE\RIBOFLAVIN 5^-PHOSPHATE SODIUM\THIA
     Dosage: 1X/DAY
  27. VITAMINS [Concomitant]
     Active Substance: VITAMINS
     Dosage: 1X/DAY
  28. TYLENOL [Concomitant]
     Active Substance: ACETAMINOPHEN
     Dosage: 325 MG, 4X/DAY
  29. FIORICET [Concomitant]
     Active Substance: ACETAMINOPHEN\BUTALBITAL\CAFFEINE
     Dosage: 1 DOSAGE UNIT, EVERY 4 HOURS
  30. HUMIRA [Concomitant]
     Active Substance: ADALIMUMAB
     Dosage: 40 MG, EVERY 2 WEEKS
  31. MELATONIN [Concomitant]
     Active Substance: MELATONIN
     Dosage: 5 MG, 1X/DAY AT BEDTIME
  32. MESTINON [Concomitant]
     Active Substance: PYRIDOSTIGMINE BROMIDE
     Dosage: 60 MG, 4X/DAY
  33. TOPAMAX [Concomitant]
     Active Substance: TOPIRAMATE
     Dosage: 50 MG, 2X/DAY
  34. TRAMADOL [Concomitant]
     Active Substance: TRAMADOL
     Dosage: 50 MG, EVERY 8 HOURS

REACTIONS (7)
  - Gastrointestinal disorder [Unknown]
  - Product substitution issue [Unknown]
  - Condition aggravated [Not Recovered/Not Resolved]
  - Cough [Not Recovered/Not Resolved]
  - Pleurisy [Not Recovered/Not Resolved]
  - Contraindicated product administered [Not Recovered/Not Resolved]
  - Paraesthesia [Not Recovered/Not Resolved]

NARRATIVE: CASE EVENT DATE: 20190401
